FAERS Safety Report 17614953 (Version 1)
Quarter: 2020Q2

REPORT INFORMATION
  Report Type: Spontaneous
  Country: US (occurrence: US)
  Receive Date: 20200402
  Receipt Date: 20200402
  Transmission Date: 20200713
  Serious: Yes (Other)
  Sender: FDA-Public Use
  Company Number: US-AMGEN-USASP2020051137

PATIENT
  Sex: Male

DRUGS (9)
  1. QUETIAPINE. [Concomitant]
     Active Substance: QUETIAPINE
     Dosage: 100 MILLIGRAM
  2. SIMVASTATIN. [Concomitant]
     Active Substance: SIMVASTATIN
     Dosage: 40 MILLIGRAM
  3. DILANTIN [Concomitant]
     Active Substance: PHENYTOIN
     Dosage: 100 MILLIGRAM
  4. KLONOPIN [Concomitant]
     Active Substance: CLONAZEPAM
     Dosage: 2 MILLIGRAM
  5. OMEPRAZOLE. [Concomitant]
     Active Substance: OMEPRAZOLE
     Dosage: 40 MILLIGRAM
  6. REPATHA [Suspect]
     Active Substance: EVOLOCUMAB
     Indication: PSORIASIS
     Dosage: 140 MILLIGRAM, Q2WK
     Route: 058
  7. CARVEDILOL. [Concomitant]
     Active Substance: CARVEDILOL
     Dosage: 12.5 MILLIGRAM
  8. ENALAPRIL [Concomitant]
     Active Substance: ENALAPRIL
     Dosage: 2.5 MILLIGRAM
  9. TEMAZEPAM. [Concomitant]
     Active Substance: TEMAZEPAM
     Dosage: 30 MILLIGRAM

REACTIONS (2)
  - Surgery [Unknown]
  - Off label use [Unknown]
